FAERS Safety Report 24528015 (Version 3)
Quarter: 2025Q2

REPORT INFORMATION
  Report Type: Spontaneous
  Country: JP (occurrence: JP)
  Receive Date: 20241021
  Receipt Date: 20250404
  Transmission Date: 20250717
  Serious: Yes (Hospitalization)
  Sender: PFIZER
  Company Number: JP-PFIZER INC-PV202400135319

PATIENT
  Sex: Male

DRUGS (1)
  1. SIROLIMUS [Suspect]
     Active Substance: SIROLIMUS
     Indication: Gorham^s disease
     Dosage: 3 MG, DAILY
     Route: 048

REACTIONS (2)
  - Pneumonia [Recovered/Resolved]
  - Physical deconditioning [Recovered/Resolved]
